FAERS Safety Report 15293400 (Version 1)
Quarter: 2018Q4

REPORT INFORMATION
  Report Type: Spontaneous
  Country: US (occurrence: US)
  Receive Date: 20180820
  Receipt Date: 20180820
  Transmission Date: 20190204
  Serious: No
  Sender: FDA-Public Use
  Company Number: US-TEVA-2018-US-884950

PATIENT
  Age: 36 Year
  Sex: Female

DRUGS (8)
  1. PITOCIN [Suspect]
     Active Substance: OXYTOCIN
     Indication: LABOUR INDUCTION
     Route: 065
  2. DILAUDID [Suspect]
     Active Substance: HYDROMORPHONE HYDROCHLORIDE
     Indication: ANALGESIC THERAPY
     Route: 030
  3. BENADRYL [Suspect]
     Active Substance: DIPHENHYDRAMINE HYDROCHLORIDE
     Indication: ANALGESIC THERAPY
     Route: 030
  4. TERBUTALINE [Suspect]
     Active Substance: TERBUTALINE
     Dosage: ADDITIONAL DOSE AFTER PREVIOUS ADMINISTRATION
     Route: 042
  5. MISOPROSTOL. [Suspect]
     Active Substance: MISOPROSTOL
     Indication: LABOUR INDUCTION
     Route: 067
  6. TERBUTALINE [Suspect]
     Active Substance: TERBUTALINE
     Indication: TACHYCARDIA
     Dosage: 0.125MG
     Route: 042
  7. TERBUTALINE [Suspect]
     Active Substance: TERBUTALINE
     Dosage: 0.25MG
     Route: 030
  8. GLIBENCLAMIDE [Suspect]
     Active Substance: GLYBURIDE
     Indication: GESTATIONAL DIABETES
     Route: 065

REACTIONS (2)
  - Maternal exposure during delivery [Recovered/Resolved]
  - Maternal exposure during pregnancy [Recovered/Resolved]
